FAERS Safety Report 17407277 (Version 1)
Quarter: 2020Q1

REPORT INFORMATION
  Report Type: Spontaneous
  Country: US (occurrence: US)
  Receive Date: 20200212
  Receipt Date: 20200212
  Transmission Date: 20200409
  Serious: Yes (Other)
  Sender: FDA-Public Use
  Company Number: US-ROCHE-2539893

PATIENT
  Sex: Female

DRUGS (1)
  1. TAMIFLU [Suspect]
     Active Substance: OSELTAMIVIR PHOSPHATE
     Indication: PRODUCT USED FOR UNKNOWN INDICATION
     Dosage: UNKNOWN
     Route: 065

REACTIONS (8)
  - Homicidal ideation [Unknown]
  - Mental disorder [Unknown]
  - Anxiety [Unknown]
  - Dyspnoea [Unknown]
  - Hallucination [Unknown]
  - Pyrexia [Unknown]
  - Abnormal behaviour [Unknown]
  - Hypersensitivity [Unknown]
